FAERS Safety Report 5712028-X (Version None)
Quarter: 2008Q2

REPORT INFORMATION
  Report Type: 
  Country: None (occurrence: None)
  Receive Date: 20080421
  Receipt Date: 20080421
  Transmission Date: 20081010
  Serious: Yes (Hospitalization)
  Sender: FDA-Public Use
  Company Number: None

PATIENT
  Sex: Male
  Weight: 99.1 kg

DRUGS (2)
  1. THYMOGLOBULIN [Suspect]
     Indication: RENAL TRANSPLANT
     Dosage: 150 MG ONE DOSE IV DRIP
     Route: 041
     Dates: start: 20080416
  2. THYMOGLOBULIN [Suspect]
     Indication: RENAL TRANSPLANT
     Dosage: 150 MG ONE DOSE IV DRIP
     Route: 041
     Dates: start: 20080417

REACTIONS (3)
  - ATRIAL FIBRILLATION [None]
  - HYPOTENSION [None]
  - INFUSION RELATED REACTION [None]
